FAERS Safety Report 23039888 (Version 2)
Quarter: 2023Q4

REPORT INFORMATION
  Report Type: Report from Study
  Country: CR (occurrence: CR)
  Receive Date: 20231006
  Receipt Date: 20231211
  Transmission Date: 20240109
  Serious: Yes (Other)
  Sender: FDA-Public Use
  Company Number: CR-002147023-NVSC2023CR214473

PATIENT
  Age: 76 Year
  Sex: Female

DRUGS (1)
  1. KISQALI [Suspect]
     Active Substance: RIBOCICLIB
     Indication: Breast cancer
     Dosage: 600 MG, QD
     Route: 048
     Dates: start: 20230408

REACTIONS (10)
  - Diabetes mellitus [Unknown]
  - Malaise [Unknown]
  - Discomfort [Unknown]
  - Hypertension [Unknown]
  - Nausea [Unknown]
  - Stomatitis [Unknown]
  - Irritability [Unknown]
  - Decreased immune responsiveness [Unknown]
  - Product dose omission issue [Unknown]
  - Inappropriate schedule of product administration [Unknown]

NARRATIVE: CASE EVENT DATE: 20230401
